FAERS Safety Report 8954143 (Version 4)
Quarter: 2013Q2

REPORT INFORMATION
  Report Type: Spontaneous
  Country: US (occurrence: US)
  Receive Date: 20121207
  Receipt Date: 20130514
  Transmission Date: 20140414
  Serious: No
  Sender: FDA-Public Use
  Company Number: US-009507513-1212USA001147

PATIENT
  Age: 52 Year
  Sex: Female

DRUGS (8)
  1. ASMANEX TWISTHALER [Suspect]
     Dosage: UNK
     Route: 055
     Dates: start: 20121128
  2. CARDIZEM [Concomitant]
  3. WELLBUTRIN [Concomitant]
  4. MELOXICAM [Concomitant]
  5. HYDROXYCHLOROQUINE SULFATE [Concomitant]
  6. SINGULAIR [Concomitant]
  7. FLOVENT [Concomitant]
  8. ALBUTEROL [Concomitant]

REACTIONS (14)
  - Dyspnoea [Recovering/Resolving]
  - Feeling abnormal [Recovering/Resolving]
  - Cough [Recovering/Resolving]
  - Nervousness [Recovering/Resolving]
  - Heart rate increased [Recovering/Resolving]
  - Labile blood pressure [Recovering/Resolving]
  - Thirst [Recovering/Resolving]
  - Pollakiuria [Recovering/Resolving]
  - Productive cough [Recovering/Resolving]
  - Respiratory rate increased [Recovering/Resolving]
  - Palpitations [Recovering/Resolving]
  - Accidental exposure to product [Unknown]
  - Product container issue [Unknown]
  - Thyroid neoplasm [Unknown]
